FAERS Safety Report 13551623 (Version 2)
Quarter: 2017Q2

REPORT INFORMATION
  Report Type: Spontaneous
  Country: US (occurrence: US)
  Receive Date: 20170516
  Receipt Date: 20170518
  Transmission Date: 20170830
  Serious: Yes (Other)
  Sender: FDA-Public Use
  Company Number: US-BAYER-2017-092261

PATIENT
  Age: 34 Year
  Sex: Male
  Weight: 91 kg

DRUGS (1)
  1. ALKA-SELTZER ORIGINAL [Suspect]
     Active Substance: ANHYDROUS CITRIC ACID\ASPIRIN\SODIUM BICARBONATE
     Indication: INFLUENZA
     Dosage: 2 DF, DISSOLVED IN WATER
     Route: 048
     Dates: start: 2015, end: 20170403

REACTIONS (7)
  - Dizziness [Not Recovered/Not Resolved]
  - Mental disorder [Unknown]
  - Asthenia [Not Recovered/Not Resolved]
  - Weight decreased [Not Recovered/Not Resolved]
  - Feeling abnormal [Unknown]
  - Gastric haemorrhage [Not Recovered/Not Resolved]
  - Drug ineffective [Unknown]

NARRATIVE: CASE EVENT DATE: 20170404
